FAERS Safety Report 4300867-1 (Version None)
Quarter: 2004Q1

REPORT INFORMATION
  Report Type: 
  Country: None (occurrence: None)
  Receive Date: 20040220
  Receipt Date: 20020516
  Transmission Date: 20041129
  Serious: Yes (Hospitalization, Other)
  Sender: FDA-Public Use
  Company Number: WAES 0205USA02031

PATIENT
  Age: 78 Year
  Sex: Female
  Weight: 53 kg

DRUGS (9)
  1. FOSAMAX [Concomitant]
     Route: 048
  2. PREMPRO [Concomitant]
     Dates: end: 20021223
  3. ADVIL [Concomitant]
     Indication: PAIN
  4. SYNTHROID [Concomitant]
  5. CLARITIN [Concomitant]
  6. VIOXX [Suspect]
     Indication: BONE PAIN
     Route: 048
     Dates: start: 20001001, end: 20001228
  7. VIOXX [Suspect]
     Route: 048
     Dates: start: 19990101
  8. VIOXX [Suspect]
     Indication: OSTEOPOROSIS
     Route: 048
     Dates: start: 20001001, end: 20001228
  9. VIOXX [Suspect]
     Route: 048
     Dates: start: 19990101

REACTIONS (35)
  - ABDOMINAL PAIN [None]
  - ANAEMIA [None]
  - AORTIC VALVE INCOMPETENCE [None]
  - BLADDER DISORDER [None]
  - CATARACT [None]
  - CLOSED HEAD INJURY [None]
  - CONTUSION [None]
  - DYSPEPSIA [None]
  - DYSPNOEA [None]
  - DYSURIA [None]
  - EAR PAIN [None]
  - EYE HAEMORRHAGE [None]
  - EYE PAIN [None]
  - FALL [None]
  - GLAUCOMA [None]
  - HEADACHE [None]
  - HEARING IMPAIRED [None]
  - HYPERTENSION [None]
  - HYPOKALAEMIA [None]
  - KERATOCONJUNCTIVITIS SICCA [None]
  - LOOSE BODY IN JOINT [None]
  - MIGRAINE [None]
  - MITRAL VALVE INCOMPETENCE [None]
  - NAUSEA [None]
  - NEURODERMATITIS [None]
  - OPTIC NERVE INJURY [None]
  - PALPITATIONS [None]
  - PARAESTHESIA ORAL [None]
  - PERIPHERAL VASCULAR DISORDER [None]
  - POLYMYALGIA RHEUMATICA [None]
  - RETINAL VEIN OCCLUSION [None]
  - SINUSITIS [None]
  - SKIN LACERATION [None]
  - SYNCOPE [None]
  - VISION BLURRED [None]
